FAERS Safety Report 8418107-0 (Version None)
Quarter: 2012Q2

REPORT INFORMATION
  Report Type: 
  Country: None (occurrence: None)
  Receive Date: 20120607
  Receipt Date: 20120530
  Transmission Date: 20120825
  Serious: Yes (Other)
  Sender: FDA-Public Use
  Company Number: DE-TEVA-329760GER

PATIENT
  Sex: Female
  Weight: 46 kg

DRUGS (4)
  1. CIPROFLOXACIN [Suspect]
     Indication: LEUKOPENIA
  2. TOPOTECAN [Concomitant]
     Indication: FALLOPIAN TUBE CANCER METASTATIC
  3. CIPROFLOXACIN [Suspect]
     Indication: NASOPHARYNGITIS
     Dosage: 250 MILLIGRAM;
     Route: 048
     Dates: start: 20120312, end: 20120312
  4. CIPROFLOXACIN [Suspect]
     Indication: NEUTROPENIA

REACTIONS (2)
  - VITH NERVE PARALYSIS [None]
  - COLOUR BLINDNESS [None]
